FAERS Safety Report 24230774 (Version 1)
Quarter: 2024Q3

REPORT INFORMATION
  Report Type: Spontaneous
  Country: AU (occurrence: AU)
  Receive Date: 20240821
  Receipt Date: 20240821
  Transmission Date: 20241017
  Serious: Yes (Death, Other)
  Sender: SANDOZ
  Company Number: AU-ASPEN-AUS2024AU004946

PATIENT

DRUGS (9)
  1. BORTEZOMIB [Suspect]
     Active Substance: BORTEZOMIB
     Indication: Plasma cell myeloma
     Dosage: 13 MG/M2
     Route: 058
  2. CYCLOPHOSPHAMIDE [Suspect]
     Active Substance: CYCLOPHOSPHAMIDE
     Indication: Plasma cell myeloma
     Dosage: 300 MG/M2 ON DAYS 1, 8, 15, AND 22
     Route: 048
  3. DECADRON (DEXAMETHASONE SODIUM PHOSPHATE) [Suspect]
     Active Substance: DEXAMETHASONE SODIUM PHOSPHATE
     Indication: Prophylaxis
     Dosage: 20 MG ON DAYS 1, 8, 15, AND 22
     Route: 048
  4. DECADRON (DEXAMETHASONE SODIUM PHOSPHATE) [Suspect]
     Active Substance: DEXAMETHASONE SODIUM PHOSPHATE
     Indication: Plasma cell myeloma
     Dosage: UNK
     Route: 048
  5. DARATUMUMAB [Suspect]
     Active Substance: DARATUMUMAB
     Indication: Plasma cell myeloma
     Dosage: 16 MG/KG ON DAYS 1, 8, 15, AND 22 OF CYCLES 1 AND 2; DAYS 1 AND  15 OF CYCLES 3 TO 6; AND DAY 1 OF C
     Route: 042
  6. DARATUMUMAB [Suspect]
     Active Substance: DARATUMUMAB
     Dosage: 16 MG/KG ON DAYS 1, 8, 15, AND 22 OF CYCLES 1 AND 2; DAYS 1 AND  15 OF CYCLES 3 TO 6; AND DAY 1 OF C
     Route: 042
  7. DIPHENHYDRAMINE HYDROCHLORIDE [Concomitant]
     Active Substance: DIPHENHYDRAMINE HYDROCHLORIDE
     Indication: Prophylaxis
     Dosage: 25-50 MG OR EQUIVALENT
     Route: 065
  8. MONTELUKAST SODIUM [Concomitant]
     Active Substance: MONTELUKAST\MONTELUKAST SODIUM
     Indication: Prophylaxis
     Dosage: 10 MG
     Route: 048
  9. ACETAMINOPHEN [Concomitant]
     Active Substance: ACETAMINOPHEN
     Indication: Prophylaxis
     Dosage: 1000 MG
     Route: 048

REACTIONS (2)
  - Plasma cell myeloma [Fatal]
  - Off label use [Unknown]
